FAERS Safety Report 16113260 (Version 3)
Quarter: 2019Q2

REPORT INFORMATION
  Report Type: Report from Study
  Country: CA (occurrence: CA)
  Receive Date: 20190325
  Receipt Date: 20190613
  Transmission Date: 20190711
  Serious: Yes (Other)
  Sender: FDA-Public Use
  Company Number: CA-JNJFOC-20190327090

PATIENT
  Sex: Male
  Weight: 51 kg

DRUGS (1)
  1. REMICADE [Suspect]
     Active Substance: INFLIXIMAB
     Indication: CROHN^S DISEASE
     Route: 042

REACTIONS (4)
  - Anorectal discomfort [Unknown]
  - Mucous stools [Unknown]
  - Haematochezia [Recovered/Resolved]
  - Anal abscess [Recovering/Resolving]
